FAERS Safety Report 8396273-3 (Version None)
Quarter: 2012Q2

REPORT INFORMATION
  Report Type: 
  Country: None (occurrence: None)
  Receive Date: 20120530
  Receipt Date: 20120522
  Transmission Date: 20120825
  Serious: Yes (Hospitalization)
  Sender: FDA-Public Use
  Company Number: FR-VERTEX PHARMACEUTICALS INC.-000000000000000102

PATIENT
  Age: 55 Year
  Sex: Male

DRUGS (5)
  1. INCIVO (TELAPREVIR) [Suspect]
     Indication: HEPATITIS C
     Dosage: DOSAGE FORM: TABLET
     Route: 048
     Dates: start: 20110819, end: 20111018
  2. PEGASYS [Concomitant]
     Indication: HEPATITIS C
     Route: 058
     Dates: start: 20110819, end: 20111018
  3. LANTUS [Concomitant]
     Indication: DIABETES MELLITUS
  4. COPEGUS [Concomitant]
     Indication: HEPATITIS C
     Route: 048
     Dates: start: 20110819, end: 20111018
  5. NOVORAPID [Concomitant]
     Indication: DIABETES MELLITUS

REACTIONS (2)
  - RASH ERYTHEMATOUS [None]
  - RASH [None]
